FAERS Safety Report 12962814 (Version 1)
Quarter: 2016Q4

REPORT INFORMATION
  Report Type: Report from Study
  Country: DE (occurrence: DE)
  Receive Date: 20161121
  Receipt Date: 20161121
  Transmission Date: 20170207
  Serious: Yes (Hospitalization)
  Sender: FDA-Public Use
  Company Number: DE-ROCHE-1791721

PATIENT
  Age: 49 Year
  Sex: Female

DRUGS (17)
  1. ENAHEXAL [Concomitant]
     Active Substance: ENALAPRIL MALEATE
  2. SIMVASTATIN. [Concomitant]
     Active Substance: SIMVASTATIN
  3. MARCUMAR [Concomitant]
     Active Substance: PHENPROCOUMON
  4. PALLADON [Concomitant]
     Active Substance: HYDROMORPHONE
  5. LYRICA [Concomitant]
     Active Substance: PREGABALIN
  6. METOPROLOL. [Concomitant]
     Active Substance: METOPROLOL
  7. ALENDRONIC ACID [Concomitant]
     Active Substance: ALENDRONIC ACID
  8. INSULIN [Concomitant]
     Active Substance: INSULIN NOS
  9. NOVALGIN [Concomitant]
     Active Substance: METAMIZOLE SODIUM
  10. RITUXIMAB [Suspect]
     Active Substance: RITUXIMAB
     Indication: RHEUMATOID ARTHRITIS
     Dosage: DATE OF LAST DOSE PRIOR TO EVENT :01/SEP/2015
     Route: 065
  11. HYDROMORPHONE [Concomitant]
     Active Substance: HYDROMORPHONE
  12. NOVAMINSULFON [Concomitant]
     Active Substance: METAMIZOLE
  13. PANTOPRAZOL [Concomitant]
     Active Substance: PANTOPRAZOLE SODIUM
  14. MACROGOL [Concomitant]
     Active Substance: POLYETHYLENE GLYCOLS
  15. FENTANYL. [Concomitant]
     Active Substance: FENTANYL
     Route: 065
  16. HYDROCHLOROTHIAZID [Concomitant]
     Active Substance: HYDROCHLOROTHIAZIDE
  17. BELOC-ZOK MITE [Concomitant]
     Active Substance: METOPROLOL SUCCINATE

REACTIONS (2)
  - Gangrene [Not Recovered/Not Resolved]
  - Fistula [Not Recovered/Not Resolved]

NARRATIVE: CASE EVENT DATE: 201603
